FAERS Safety Report 7059697-2 (Version None)
Quarter: 2010Q4

REPORT INFORMATION
  Report Type: 
  Country: None (occurrence: None)
  Receive Date: 20101025
  Receipt Date: 20101014
  Transmission Date: 20110411
  Serious: Yes (Hospitalization, Other)
  Sender: FDA-Public Use
  Company Number: CA-JNJFOC-20101004874

PATIENT
  Sex: Female
  Weight: 57 kg

DRUGS (2)
  1. REMICADE [Suspect]
     Indication: RHEUMATOID ARTHRITIS
     Route: 042
  2. REMICADE [Suspect]
     Route: 042

REACTIONS (7)
  - CHEST DISCOMFORT [None]
  - INFUSION RELATED REACTION [None]
  - NAUSEA [None]
  - PRURITUS [None]
  - RASH [None]
  - SOMNOLENCE [None]
  - VOMITING [None]
